FAERS Safety Report 16298534 (Version 3)
Quarter: 2019Q4

REPORT INFORMATION
  Report Type: Spontaneous
  Country: US (occurrence: US)
  Receive Date: 20190510
  Receipt Date: 20191125
  Transmission Date: 20200122
  Serious: Yes (Other)
  Sender: FDA-Public Use
  Company Number: US-009507513-1905USA003217

PATIENT
  Age: 19 Year
  Sex: Female
  Weight: 123.36 kg

DRUGS (6)
  1. VITAMIN D (UNSPECIFIED) [Concomitant]
     Active Substance: VITAMIN D NOS
     Indication: VITAMIN D DEFICIENCY
  2. NEXPLANON [Suspect]
     Active Substance: ETONOGESTREL
     Indication: CONTRACEPTION
     Dosage: 1 SINGLE IMPLANT, UNK
     Route: 059
     Dates: start: 20160411, end: 20190108
  3. VITAMIN D (UNSPECIFIED) [Concomitant]
     Active Substance: VITAMIN D NOS
     Indication: VITAMIN A DEFICIENCY
     Dosage: 2000 IU, QD
     Route: 048
     Dates: start: 201902
  4. FESOFOR [Concomitant]
     Active Substance: IRON
     Indication: ANAEMIA
     Dosage: 325 MILLIGRAM, QD
     Route: 048
     Dates: start: 201906
  5. PNV [Concomitant]
     Indication: PREGNANCY
     Dosage: UNK, QD
     Route: 048
     Dates: start: 201901
  6. NEXPLANON [Suspect]
     Active Substance: ETONOGESTREL
     Dosage: 1 UNK
     Route: 059
     Dates: start: 20130411, end: 20160411

REACTIONS (3)
  - Pre-eclampsia [Unknown]
  - Unintended pregnancy [Recovered/Resolved]
  - Pregnancy with implant contraceptive [Recovered/Resolved]

NARRATIVE: CASE EVENT DATE: 20181219
